FAERS Safety Report 18548829 (Version 1)
Quarter: 2020Q4

REPORT INFORMATION
  Report Type: Spontaneous
  Country: US (occurrence: US)
  Receive Date: 20201126
  Receipt Date: 20201126
  Transmission Date: 20210114
  Serious: Yes (Hospitalization, Other)
  Sender: FDA-Public Use
  Company Number: US-SA-2020SA324802

PATIENT

DRUGS (2)
  1. ALEMTUZUMAB [Suspect]
     Active Substance: ALEMTUZUMAB
     Indication: RELAPSING-REMITTING MULTIPLE SCLEROSIS
     Dosage: UNK UNK, QCY
     Dates: start: 201602
  2. ALEMTUZUMAB [Suspect]
     Active Substance: ALEMTUZUMAB
     Dosage: UNK, QCY
     Dates: start: 2017

REACTIONS (18)
  - Cardiac sarcoidosis [Recovering/Resolving]
  - Abdominal pain upper [Recovering/Resolving]
  - Dyspnoea [Unknown]
  - Pain [Recovering/Resolving]
  - Cholelithiasis [Recovered/Resolved]
  - Leukopenia [Recovering/Resolving]
  - Eosinophilia [Recovering/Resolving]
  - Pneumonia [Unknown]
  - Granuloma [Recovering/Resolving]
  - Back pain [Recovering/Resolving]
  - Microcytic anaemia [Recovering/Resolving]
  - Neutropenia [Recovering/Resolving]
  - Monocytosis [Recovering/Resolving]
  - Sarcoidosis [Recovering/Resolving]
  - Splenomegaly [Recovering/Resolving]
  - Immune thrombocytopenia [Recovering/Resolving]
  - Thrombophlebitis superficial [Unknown]
  - Pain in extremity [Unknown]

NARRATIVE: CASE EVENT DATE: 2016
